FAERS Safety Report 15781186 (Version 1)
Quarter: 2019Q1

REPORT INFORMATION
  Report Type: Report from Study
  Country: EG (occurrence: EG)
  Receive Date: 20190102
  Receipt Date: 20190102
  Transmission Date: 20190417
  Serious: Yes (Hospitalization, Other)
  Sender: FDA-Public Use
  Company Number: EG-SA-2018SA394404

PATIENT
  Age: 18 Year
  Sex: Female

DRUGS (3)
  1. INSULIN GLARGINE [Suspect]
     Active Substance: INSULIN GLARGINE
     Indication: TYPE 1 DIABETES MELLITUS
     Dosage: 26 IU, QD
     Route: 058
     Dates: start: 20160801
  2. ACTRAPID [Concomitant]
     Active Substance: INSULIN HUMAN
     Dosage: UNK UNK, UNK
  3. ELTROXIN [Concomitant]
     Active Substance: LEVOTHYROXINE
     Dosage: UNK UNK, UNK

REACTIONS (4)
  - Anaemia [Not Recovered/Not Resolved]
  - Diabetic ketoacidosis [Recovered/Resolved]
  - Thrombosis [Not Recovered/Not Resolved]
  - Hyperglycaemia [Recovered/Resolved]

NARRATIVE: CASE EVENT DATE: 20180810
